FAERS Safety Report 11288611 (Version 1)
Quarter: 2015Q3

REPORT INFORMATION
  Report Type: Spontaneous
  Country: CA (occurrence: CA)
  Receive Date: 20150721
  Receipt Date: 20150721
  Transmission Date: 20151125
  Serious: Yes (Other)
  Sender: FDA-Public Use
  Company Number: CA-BAYER-2015-374338

PATIENT
  Age: 23 Year
  Sex: Female

DRUGS (1)
  1. AVELOX [Suspect]
     Active Substance: MOXIFLOXACIN HYDROCHLORIDE
     Indication: PRODUCT USED FOR UNKNOWN INDICATION
     Dosage: UNK
     Dates: start: 201412

REACTIONS (6)
  - Throat irritation [None]
  - Cystic fibrosis pancreatic [None]
  - Seasonal allergy [None]
  - Drug ineffective [None]
  - Pruritus [None]
  - Mechanical urticaria [None]

NARRATIVE: CASE EVENT DATE: 201412
